FAERS Safety Report 7961078-1 (Version None)
Quarter: 2011Q4

REPORT INFORMATION
  Report Type: 
  Country: None (occurrence: None)
  Receive Date: 20111207
  Receipt Date: 20111129
  Transmission Date: 20120403
  Serious: Yes (Hospitalization)
  Sender: FDA-Public Use
  Company Number: US-UCBSA-046699

PATIENT
  Age: 28 Year
  Sex: Male
  Weight: 77.29 kg

DRUGS (3)
  1. LACOSAMIDE [Suspect]
     Dosage: TOTAL DAILY DOSE: 500MG
     Route: 048
  2. LACOSAMIDE [Suspect]
     Route: 048
     Dates: start: 20100524
  3. LACOSAMIDE [Suspect]
     Indication: EPILEPSY
     Route: 048
     Dates: end: 20111101

REACTIONS (1)
  - DYSKINESIA [None]
